FAERS Safety Report 7491161-9 (Version None)
Quarter: 2011Q2

REPORT INFORMATION
  Report Type: 
  Country: None (occurrence: None)
  Receive Date: 20110519
  Receipt Date: 20110509
  Transmission Date: 20111010
  Serious: Yes (Hospitalization, Other)
  Sender: FDA-Public Use
  Company Number: JP-JNJFOC-20110402584

PATIENT
  Age: 58 Year
  Sex: Female

DRUGS (1)
  1. DOXIL [Suspect]
     Indication: OVARIAN CANCER RECURRENT
     Dosage: PATIENT RECEIVED TOTAL 4 CYCLES
     Route: 042
     Dates: start: 20101001

REACTIONS (1)
  - INTERSTITIAL LUNG DISEASE [None]
